FAERS Safety Report 16509859 (Version 2)
Quarter: 2019Q3

REPORT INFORMATION
  Report Type: Spontaneous
  Country: MX (occurrence: MX)
  Receive Date: 20190702
  Receipt Date: 20190703
  Transmission Date: 20191004
  Serious: Yes (Death, Other)
  Sender: FDA-Public Use
  Company Number: MX-ROCHE-2347572

PATIENT
  Age: 33 Year
  Sex: Female
  Weight: 53 kg

DRUGS (7)
  1. PREDNISONE. [Suspect]
     Active Substance: PREDNISONE
     Indication: OFF LABEL USE
  2. CLOPIDOGREL [Concomitant]
     Active Substance: CLOPIDOGREL BISULFATE
     Indication: OFF LABEL USE
  3. ASPIRIN [ACETYLSALICYLIC ACID] [Concomitant]
     Active Substance: ASPIRIN
     Indication: OFF LABEL USE
  4. ROACTEMRA [Suspect]
     Active Substance: TOCILIZUMAB
     Indication: OFF LABEL USE
  5. ROACTEMRA [Suspect]
     Active Substance: TOCILIZUMAB
     Indication: TAKAYASU^S ARTERITIS
     Route: 042
     Dates: start: 201802, end: 201905
  6. RIVAROXABAN [Concomitant]
     Active Substance: RIVAROXABAN
     Indication: OFF LABEL USE
  7. PREDNISONE. [Suspect]
     Active Substance: PREDNISONE
     Indication: TAKAYASU^S ARTERITIS
     Dosage: DOSAGE OF 10 TO 50MG
     Route: 065
     Dates: end: 201906

REACTIONS (3)
  - Intentional product use issue [Unknown]
  - Tuberculosis of central nervous system [Fatal]
  - Off label use [Unknown]

NARRATIVE: CASE EVENT DATE: 20190620
